FAERS Safety Report 4579530-8 (Version None)
Quarter: 2005Q1

REPORT INFORMATION
  Report Type: 
  Country: None (occurrence: None)
  Receive Date: 20050210
  Receipt Date: 20041202
  Transmission Date: 20050727
  Serious: Yes (Other)
  Sender: FDA-Public Use
  Company Number: 2004S1003556

PATIENT
  Age: 66 Year
  Sex: Female

DRUGS (3)
  1. CLOZAPINE [Suspect]
     Indication: SCHIZOAFFECTIVE DISORDER
     Dosage: 300MG QD THEN 100MG QD, ORAL
     Route: 048
     Dates: start: 20041111
  2. ZOCOR [Suspect]
     Indication: HYPERCHOLESTEROLAEMIA
     Dosage: 20MG HS, ORAL
     Route: 048
     Dates: start: 20041111
  3. LEVOTHYROXINE [Concomitant]

REACTIONS (5)
  - DIVERTICULITIS [None]
  - MALAISE [None]
  - PYREXIA [None]
  - RED BLOOD CELL SEDIMENTATION RATE INCREASED [None]
  - TACHYCARDIA [None]
